FAERS Safety Report 9314786 (Version 1)
Quarter: 2013Q2

REPORT INFORMATION
  Report Type: Spontaneous
  Country: US (occurrence: US)
  Receive Date: 20130529
  Receipt Date: 20130529
  Transmission Date: 20140414
  Serious: Yes (Hospitalization)
  Sender: FDA-Public Use
  Company Number: US-ELI_LILLY_AND_COMPANY-US201304005380

PATIENT
  Sex: Male
  Weight: 126.8 kg

DRUGS (5)
  1. CYMBALTA [Suspect]
     Indication: DIABETIC NEUROPATHY
     Dosage: 30 MG, QD
     Dates: start: 20130412, end: 20130415
  2. NEURONTIN [Concomitant]
  3. METFORMIN [Concomitant]
  4. FUROSEMIDE [Concomitant]
  5. OXYCONTIN [Concomitant]

REACTIONS (3)
  - Pain in extremity [Recovered/Resolved]
  - Pyrexia [Recovered/Resolved]
  - Hyperhidrosis [Recovered/Resolved]
